FAERS Safety Report 4868166-7 (Version None)
Quarter: 2005Q4

REPORT INFORMATION
  Report Type: 
  Country: None (occurrence: None)
  Receive Date: 20051229
  Receipt Date: 20050804
  Transmission Date: 20060501
  Serious: Yes (Other)
  Sender: FDA-Public Use
  Company Number: PHBS2005JP11348

PATIENT
  Age: 73 Year
  Sex: Female

DRUGS (3)
  1. TEGRETOL [Suspect]
     Indication: LYMPHOMA
     Dosage: 400 MG/DAY
     Route: 048
     Dates: start: 20050721, end: 20050725
  2. TEGRETOL [Suspect]
     Dosage: 200 MG/DAY
     Route: 048
     Dates: start: 20050804, end: 20050810
  3. ANTIHISTAMINES [Suspect]
     Route: 048

REACTIONS (1)
  - AMNESIA [None]
